FAERS Safety Report 20360227 (Version 2)
Quarter: 2023Q1

REPORT INFORMATION
  Report Type: Report from Study
  Country: CA (occurrence: CA)
  Receive Date: 20220121
  Receipt Date: 20230127
  Transmission Date: 20230417
  Serious: Yes (Hospitalization, Other)
  Sender: FDA-Public Use
  Company Number: CA-ASTELLAS-2022US001922

PATIENT
  Age: 28 Year
  Sex: Female

DRUGS (7)
  1. TACROLIMUS [Suspect]
     Active Substance: TACROLIMUS
     Indication: Aplastic anaemia
     Dosage: UNK UNK, 2 EVERY 1 DAY
     Route: 065
  2. LAPINE T-LYMPHOCYTE IMMUNE GLOBULIN [Suspect]
     Active Substance: LAPINE T-LYMPHOCYTE IMMUNE GLOBULIN
     Indication: Product used for unknown indication
     Dosage: UNK UNK, UNKNOWN FREQ.
     Route: 065
  3. LAPINE T-LYMPHOCYTE IMMUNE GLOBULIN [Suspect]
     Active Substance: LAPINE T-LYMPHOCYTE IMMUNE GLOBULIN
     Dosage: UNK UNK, UNKNOWN FREQ.
     Route: 065
  4. CYCLOSPORINE [Suspect]
     Active Substance: CYCLOSPORINE
     Indication: Aplastic anaemia
     Dosage: UNK UNK, 2 EVERY 1 DAY
     Route: 065
  5. ELTROMBOPAG OLAMINE [Suspect]
     Active Substance: ELTROMBOPAG OLAMINE
     Indication: Aplastic anaemia
     Dosage: UNK UNK, UNKNOWN FREQ.
     Route: 048
  6. PREDNISONE [Concomitant]
     Active Substance: PREDNISONE
     Indication: Product used for unknown indication
     Dosage: UNK UNK, UNKNOWN FREQ.
     Route: 065
  7. ELTROMBOPAG [Concomitant]
     Active Substance: ELTROMBOPAG
     Indication: Product used for unknown indication
     Route: 048

REACTIONS (12)
  - Haemoglobin decreased [Unknown]
  - Aplastic anaemia [Unknown]
  - Neutrophil count decreased [Unknown]
  - Platelet count decreased [Unknown]
  - Hepatotoxicity [Unknown]
  - Ovarian cyst [Unknown]
  - Tachycardia [Unknown]
  - Pyrexia [Unknown]
  - Sinusitis [Unknown]
  - Drug intolerance [Unknown]
  - Drug ineffective [Unknown]
  - Product use in unapproved indication [Unknown]
